FAERS Safety Report 5151370-0 (Version None)
Quarter: 2006Q4

REPORT INFORMATION
  Report Type: 
  Country: None (occurrence: None)
  Receive Date: 20061114
  Receipt Date: 20061114
  Transmission Date: 20070319
  Serious: Yes (Other)
  Sender: FDA-Public Use
  Company Number: None

PATIENT
  Sex: Female
  Weight: 66.2252 kg

DRUGS (1)
  1. ACETAMINOPHEN [Suspect]
     Indication: INFLUENZA
     Dosage: 2 CAPLETS EVERY 4 HOURS
     Dates: start: 20061001, end: 20061030

REACTIONS (2)
  - HAEMATOCHEZIA [None]
  - PHARMACEUTICAL PRODUCT COMPLAINT [None]
